FAERS Safety Report 9413041 (Version 1)
Quarter: 2013Q3

REPORT INFORMATION
  Report Type: Spontaneous
  Country: US (occurrence: US)
  Receive Date: 20130722
  Receipt Date: 20130722
  Transmission Date: 20140515
  Serious: Yes (Other)
  Sender: FDA-Public Use
  Company Number: US-BAYER-2013-085340

PATIENT
  Age: 33 Year
  Sex: Male
  Weight: 157.37 kg

DRUGS (2)
  1. ONE A DAY MEN^S HEALTH FORMULA [Suspect]
     Dosage: 1 DF, QD
     Route: 048
     Dates: start: 2003, end: 201306
  2. BAYER ASPIRIN REGIMEN ADULT LOW STRENGTH [Suspect]
     Indication: ISCHAEMIC HEART DISEASE PROPHYLAXIS
     Dosage: 1 DF, QD
     Route: 048

REACTIONS (4)
  - Disorientation [Recovered/Resolved]
  - Diarrhoea [Recovered/Resolved]
  - Constipation [Recovered/Resolved]
  - Chills [Recovered/Resolved]
